FAERS Safety Report 9175277 (Version 2)
Quarter: 2013Q3

REPORT INFORMATION
  Report Type: Spontaneous
  Country: NL (occurrence: NL)
  Receive Date: 20130320
  Receipt Date: 20130819
  Transmission Date: 20140515
  Serious: Yes (Death, Life-Threatening, Hospitalization)
  Sender: FDA-Public Use
  Company Number: NL-ROCHE-1201934

PATIENT
  Age: 52 Year
  Sex: Female

DRUGS (2)
  1. CAPECITABINE [Suspect]
     Indication: BREAST CANCER METASTATIC
     Route: 048
  2. TRASTUZUMAB [Concomitant]
     Indication: BREAST CANCER METASTATIC
     Route: 042

REACTIONS (9)
  - Toxicity to various agents [Fatal]
  - Thrombocytopenia [Unknown]
  - Mucosal inflammation [Not Recovered/Not Resolved]
  - Diarrhoea haemorrhagic [Unknown]
  - Leukopenia [Unknown]
  - Febrile neutropenia [Unknown]
  - Sepsis [Unknown]
  - Diarrhoea [Not Recovered/Not Resolved]
  - Herpes zoster [Unknown]
